FAERS Safety Report 9276641 (Version 1)
Quarter: 2013Q2

REPORT INFORMATION
  Report Type: Spontaneous
  Country: US (occurrence: None)
  Receive Date: 20130501
  Receipt Date: 20130501
  Transmission Date: 20140414
  Serious: Yes (Other)
  Sender: FDA-Public Use
  Company Number: 1691162

PATIENT
  Age: 53 Year
  Sex: Male

DRUGS (4)
  1. FLUDARABINE PHOSPHATE [Suspect]
     Indication: NON-HODGKIN^S LYMPHOMA
  2. THERAPEUTIC RADIOPHARMACEUTICALS [Suspect]
     Indication: NON-HODGKIN^S LYMPHOMA
  3. GANCICLOVIR [Suspect]
     Indication: CYTOMEGALOVIRUS CHORIORETINITIS
  4. GANCICLOVIR [Suspect]
     Indication: DISSEMINATED CYTOMEGALOVIRAL INFECTION

REACTIONS (3)
  - Glomerulonephritis membranous [None]
  - Non-Hodgkin^s lymphoma [None]
  - Condition aggravated [None]
